FAERS Safety Report 18947095 (Version 1)
Quarter: 2021Q1

REPORT INFORMATION
  Report Type: Spontaneous
  Country: US (occurrence: US)
  Receive Date: 20210227
  Receipt Date: 20210227
  Transmission Date: 20210420
  Serious: No
  Sender: FDA-Public Use
  Company Number: US-ROCHE-2564345

PATIENT
  Age: 37 Year
  Sex: Female
  Weight: 75.29 kg

DRUGS (1)
  1. XOLAIR [Suspect]
     Active Substance: OMALIZUMAB
     Indication: CHRONIC SPONTANEOUS URTICARIA
     Dosage: STRENGTH 150 MG/ML, INJECT 150 MG SUBCUTANEOUSLY EVERY 28 DAYS
     Route: 058
     Dates: start: 20200210

REACTIONS (1)
  - Arthralgia [Recovered/Resolved with Sequelae]

NARRATIVE: CASE EVENT DATE: 20200225
